FAERS Safety Report 4717768-7 (Version None)
Quarter: 2005Q3

REPORT INFORMATION
  Report Type: 
  Country: None (occurrence: None)
  Receive Date: 20050718
  Receipt Date: 20050718
  Transmission Date: 20060218
  Serious: Yes (Death)
  Sender: FDA-Public Use
  Company Number: None

PATIENT
  Age: 27 Year
  Sex: Male

DRUGS (7)
  1. STAVUDINE [Suspect]
     Indication: HIV INFECTION
     Dosage: 30 MG BID ORALLY
     Route: 048
     Dates: start: 20050506
  2. LAMIVUDINE [Suspect]
     Indication: HIV INFECTION
     Dosage: 130 MG BID ORALLY
     Route: 048
     Dates: start: 20050506
  3. EFAVIRENZ [Suspect]
     Indication: HIV INFECTION
     Dosage: 600 MG QD ORALLY
     Route: 048
     Dates: start: 20050606
  4. RIFINAH [Concomitant]
  5. VITAMIN B COMPLEX CAP [Concomitant]
  6. BACTRIM [Concomitant]
  7. VITAMIN B6 [Concomitant]

REACTIONS (7)
  - HEART RATE INCREASED [None]
  - KAPOSI'S SARCOMA [None]
  - LUNG CREPITATION [None]
  - PRODUCTIVE COUGH [None]
  - RESPIRATORY DISTRESS [None]
  - RESPIRATORY RATE INCREASED [None]
  - WHEEZING [None]
